FAERS Safety Report 8405273-6 (Version None)
Quarter: 2012Q2

REPORT INFORMATION
  Report Type: 
  Country: None (occurrence: None)
  Receive Date: 20120603
  Receipt Date: 20120423
  Transmission Date: 20120825
  Serious: Yes (Other)
  Sender: FDA-Public Use
  Company Number: PHHY2012KR021556

PATIENT
  Sex: Male
  Weight: 74 kg

DRUGS (2)
  1. BLOOD TRANSFUSION, AUXILIARY PRODUCTS [Concomitant]
     Dosage: U, EVERY TWO WEEKS
  2. EXJADE [Suspect]
     Indication: IRON OVERLOAD
     Dosage: 20 MG/KG, UNK
     Route: 048
     Dates: start: 20080723, end: 20090311

REACTIONS (4)
  - HAEMOLYSIS [None]
  - LIVER FUNCTION TEST ABNORMAL [None]
  - HAEMOGLOBIN DECREASED [None]
  - BLOOD IRON ABNORMAL [None]
